FAERS Safety Report 14139220 (Version 1)
Quarter: 2017Q4

REPORT INFORMATION
  Report Type: Spontaneous
  Country: NO (occurrence: NO)
  Receive Date: 20171028
  Receipt Date: 20171028
  Transmission Date: 20180321
  Serious: Yes (Other)
  Sender: FDA-Public Use
  Company Number: NO-ACCORD-060258

PATIENT
  Age: 60 Year
  Sex: Male
  Weight: 80 kg

DRUGS (1)
  1. QUETIAPINE FUMARATE ACCORD [Suspect]
     Active Substance: QUETIAPINE FUMARATE
     Indication: PRODUCT USED FOR UNKNOWN INDICATION
     Dosage: 2 TABLETS EACH MORNING, IE 100 MG PER DAY
     Dates: start: 20170928, end: 20171010

REACTIONS (10)
  - Suicidal ideation [Recovering/Resolving]
  - Nightmare [Recovering/Resolving]
  - Hyperhidrosis [Recovering/Resolving]
  - Paraesthesia [Recovering/Resolving]
  - Speech disorder [Recovering/Resolving]
  - Vision blurred [Recovering/Resolving]
  - Hunger [Recovering/Resolving]
  - Dyspnoea [Recovering/Resolving]
  - Irritability [Recovering/Resolving]
  - Pyrexia [Recovering/Resolving]

NARRATIVE: CASE EVENT DATE: 20170930
